FAERS Safety Report 7227170-4 (Version None)
Quarter: 2011Q1

REPORT INFORMATION
  Report Type: 
  Country: None (occurrence: None)
  Receive Date: 20110105
  Receipt Date: 20101214
  Transmission Date: 20110831
  Serious: Yes (Hospitalization)
  Sender: FDA-Public Use
  Company Number: WAES 1012USA02751

PATIENT
  Age: 72 Year
  Sex: Male

DRUGS (10)
  1. CAP VORINOSTAT [Suspect]
     Indication: MULTIPLE MYELOMA
     Dosage: 200 MG/DAILY PO
     Route: 048
     Dates: start: 20091102, end: 20101214
  2. DEXAMETHASONE [Suspect]
     Indication: MULTIPLE MYELOMA
     Dosage: 20 MG/ PO
     Route: 048
     Dates: start: 20101201, end: 20101214
  3. PANTOZOL [Concomitant]
  4. ASPIRIN [Concomitant]
  5. KEIMAX [Concomitant]
  6. BORTEZOMIB [Suspect]
     Indication: MULTIPLE MYELOMA
     Dosage: 1.95 MG/M[2]/ IV
     Route: 042
     Dates: start: 20091102, end: 20101214
  7. NOVAMIN (AMIKACIN SULFATE) [Concomitant]
  8. FUROSEMIDE [Concomitant]
  9. ACETAMINOPHEN [Concomitant]
  10. ENOXAPARIN SODIUM [Concomitant]

REACTIONS (1)
  - CARDIAC FAILURE [None]
